FAERS Safety Report 15111416 (Version 1)
Quarter: 2018Q3

REPORT INFORMATION
  Report Type: Spontaneous
  Country: US (occurrence: US)
  Receive Date: 20180705
  Receipt Date: 20180705
  Transmission Date: 20181010
  Serious: No
  Sender: FDA-Public Use
  Company Number: US-VIRTUS PHARMACEUTICALS, LLC-2017VTS00659

PATIENT
  Age: 65 Year
  Sex: Female
  Weight: 72.56 kg

DRUGS (5)
  1. MULTIVITAMIN [Concomitant]
     Active Substance: VITAMINS
  2. TRIEST ? COMPOUNDED ESTROGEN [Concomitant]
  3. AMBIEN [Concomitant]
     Active Substance: ZOLPIDEM TARTRATE
  4. VITAMIN C [Concomitant]
     Active Substance: ASCORBIC ACID
  5. PROGESTERONE. [Suspect]
     Active Substance: PROGESTERONE
     Indication: HORMONE REPLACEMENT THERAPY
     Dosage: 200 MG, 1X/DAY AT BEDTIME
     Route: 048
     Dates: start: 20170814, end: 20170911

REACTIONS (3)
  - Vaginal haemorrhage [Recovered/Resolved]
  - Initial insomnia [Recovering/Resolving]
  - Paraesthesia [Recovering/Resolving]

NARRATIVE: CASE EVENT DATE: 20170819
